FAERS Safety Report 10251282 (Version 2)
Quarter: 2014Q2

REPORT INFORMATION
  Report Type: Spontaneous
  Country: US (occurrence: US)
  Receive Date: 20140621
  Receipt Date: 20140621
  Transmission Date: 20141212
  Serious: Yes (Other)
  Sender: FDA-Public Use
  Company Number: US-ABBVIE-14P-163-1240264-00

PATIENT
  Age: 69 Year
  Sex: Female
  Weight: 65.38 kg

DRUGS (3)
  1. BIAXIN XL [Suspect]
     Indication: SINUSITIS
  2. BIAXIN XL [Suspect]
     Route: 048
     Dates: start: 20140114, end: 20140123
  3. TEMAZEPAM [Concomitant]
     Indication: INSOMNIA

REACTIONS (2)
  - Ototoxicity [Not Recovered/Not Resolved]
  - Vertigo [Not Recovered/Not Resolved]
